FAERS Safety Report 16253593 (Version 1)
Quarter: 2019Q2

REPORT INFORMATION
  Report Type: Spontaneous
  Country: US (occurrence: US)
  Receive Date: 20190430
  Receipt Date: 20190430
  Transmission Date: 20190711
  Serious: No
  Sender: FDA-Public Use
  Company Number: US-CIPLA LTD.-2018US13122

PATIENT

DRUGS (2)
  1. NABUMETONE. [Suspect]
     Active Substance: NABUMETONE
     Indication: LIGAMENT SPRAIN
     Dosage: 1 DF, PER DAY
     Route: 048
     Dates: start: 201802, end: 201802
  2. LEVOTHYROXINE. [Concomitant]
     Active Substance: LEVOTHYROXINE
     Indication: PRODUCT USED FOR UNKNOWN INDICATION
     Dosage: UNK, 1 TABLET/ DAY
     Route: 065

REACTIONS (1)
  - Hypersensitivity [Recovered/Resolved]
